FAERS Safety Report 5352242-9 (Version None)
Quarter: 2007Q2

REPORT INFORMATION
  Report Type: 
  Country: None (occurrence: None)
  Receive Date: 20070607
  Receipt Date: 20070531
  Transmission Date: 20071010
  Serious: Yes (Hospitalization, Other)
  Sender: FDA-Public Use
  Company Number: 2007SP004255

PATIENT
  Age: 45 Year
  Sex: Female

DRUGS (10)
  1. PEG-INTRON [Suspect]
     Indication: HEPATITIS C
     Dosage: SC
     Route: 058
     Dates: start: 20060320, end: 20060403
  2. RIBASPHERE [Suspect]
     Indication: HEPATITIS C
     Dosage: PO
     Route: 048
     Dates: start: 20060320, end: 20060403
  3. CYMBALTA (CON.) [Concomitant]
  4. DEPO PROVERA /00115201/ (CON.) [Concomitant]
  5. KLONOPIN (CON.) [Concomitant]
  6. ACETAMINOPHEN W/OXYCODONE (CON.) [Concomitant]
  7. OXYCONTIN (CON.) [Concomitant]
  8. RESTORIL (CON.) [Concomitant]
  9. SOMA (CON.) [Concomitant]
  10. ZOLOFT /01011401/ (CON.) [Concomitant]

REACTIONS (7)
  - ANGER [None]
  - CONVULSION [None]
  - FOOT FRACTURE [None]
  - GUILLAIN-BARRE SYNDROME [None]
  - MEMORY IMPAIRMENT [None]
  - PAIN [None]
  - POSTURING [None]
